FAERS Safety Report 4355484-4 (Version None)
Quarter: 2004Q2

REPORT INFORMATION
  Report Type: 
  Country: None (occurrence: None)
  Receive Date: 20040510
  Receipt Date: 20030407
  Transmission Date: 20050107
  Serious: Yes (Hospitalization, Disabling)
  Sender: FDA-Public Use
  Company Number: US-MERCK-0304USA00741

PATIENT
  Age: 46 Year
  Sex: Female
  Weight: 111 kg

DRUGS (10)
  1. TYLENOL (CAPLET) [Concomitant]
     Indication: PAIN
     Route: 065
     Dates: start: 20010524, end: 20030722
  2. TYLENOL (CAPLET) [Concomitant]
     Route: 065
     Dates: start: 19930101
  3. LIPITOR [Concomitant]
     Indication: PROPHYLAXIS
     Route: 065
     Dates: start: 20010524, end: 20030722
  4. CELEBREX [Suspect]
     Indication: RHEUMATOID ARTHRITIS
     Route: 065
     Dates: start: 20010201, end: 20010506
  5. IRON (UNSPECIFIED) [Suspect]
     Route: 065
     Dates: start: 20010201
  6. VIOXX [Suspect]
     Indication: ARTHRITIS
     Route: 048
     Dates: start: 20010507, end: 20010516
  7. VIOXX [Suspect]
     Route: 048
     Dates: start: 20010604, end: 20010610
  8. VIOXX [Suspect]
     Route: 048
     Dates: start: 20010517, end: 20010528
  9. VIOXX [Suspect]
     Route: 048
     Dates: start: 20010610, end: 20010613
  10. TRIAMCINOLONE [Concomitant]
     Indication: PRURITUS
     Route: 061
     Dates: start: 20010220, end: 20020220

REACTIONS (29)
  - ANGINA UNSTABLE [None]
  - ANXIETY [None]
  - AORTIC ATHEROSCLEROSIS [None]
  - AORTIC VALVE INCOMPETENCE [None]
  - ARTHRITIS [None]
  - ATHEROSCLEROSIS [None]
  - CARDIAC FAILURE CONGESTIVE [None]
  - CARDIAC MURMUR [None]
  - CONSTIPATION [None]
  - CORONARY ARTERY ATHEROSCLEROSIS [None]
  - CORONARY ARTERY RESTENOSIS [None]
  - CORONARY ARTERY STENOSIS [None]
  - DEPRESSION [None]
  - FALL [None]
  - GASTROINTESTINAL HAEMORRHAGE [None]
  - HYPERLIPIDAEMIA [None]
  - HYPERTENSION [None]
  - IRON DEFICIENCY ANAEMIA [None]
  - JOINT INJURY [None]
  - JOINT STIFFNESS [None]
  - MITRAL VALVE INCOMPETENCE [None]
  - MYOCARDIAL INFARCTION [None]
  - MYOCARDIAL ISCHAEMIA [None]
  - PSORIATIC ARTHROPATHY [None]
  - PULMONARY OEDEMA [None]
  - RASH [None]
  - RECTAL HAEMORRHAGE [None]
  - STRESS SYMPTOMS [None]
  - ULCER [None]
